FAERS Safety Report 8799055 (Version 1)
Quarter: 2012Q4

REPORT INFORMATION
  Report Type: 
  Country: GB (occurrence: GB)
  Receive Date: 20120920
  Receipt Date: 20120920
  Transmission Date: 20130627
  Serious: Yes (Hospitalization)
  Sender: FDA-Public Use
  Company Number: GB-NOVOPROD-359709

PATIENT
  Age: 52 Year
  Sex: Male

DRUGS (2)
  1. LEVEMIR [Suspect]
     Indication: TYPE 1 DIABETES MELLITUS
     Dosage: 18 IU, qd
  2. METFORMIN [Concomitant]
     Indication: TYPE 1 DIABETES MELLITUS
     Dosage: 850 mg, tid

REACTIONS (2)
  - Intentional overdose [Recovered/Resolved]
  - Hypoglycaemia [Recovered/Resolved]
